FAERS Safety Report 21920965 (Version 2)
Quarter: 2023Q1

REPORT INFORMATION
  Report Type: Spontaneous
  Country: US (occurrence: US)
  Receive Date: 20230127
  Receipt Date: 20230130
  Transmission Date: 20230418
  Serious: Yes (Hospitalization)
  Sender: FDA-Public Use
  Company Number: US-JNJFOC-20230138930

PATIENT
  Age: 47 Year
  Sex: Female

DRUGS (1)
  1. MENTHOL\METHYL SALICYLATE [Suspect]
     Active Substance: MENTHOL\METHYL SALICYLATE
     Indication: Pain in extremity
     Dosage: ONCE A DAY
     Route: 065
     Dates: start: 20221126, end: 20221224

REACTIONS (2)
  - Neuralgia [Not Recovered/Not Resolved]
  - Product use in unapproved indication [Not Recovered/Not Resolved]

NARRATIVE: CASE EVENT DATE: 20221126
